FAERS Safety Report 12153221 (Version 2)
Quarter: 2016Q3

REPORT INFORMATION
  Report Type: Report from Study
  Country: US (occurrence: US)
  Receive Date: 20160305
  Receipt Date: 20160927
  Transmission Date: 20161109
  Serious: Yes (Life-Threatening, Hospitalization)
  Sender: FDA-Public Use
  Company Number: PHHY2014US045281

PATIENT
  Age: 50 Year
  Sex: Female
  Weight: 47.62 kg

DRUGS (13)
  1. VITAMIN B12 [Concomitant]
     Active Substance: CYANOCOBALAMIN
     Indication: ROUTINE HEALTH MAINTENANCE
     Dosage: 500 UG, DAILY
     Route: 048
     Dates: start: 20120810
  2. GABAPENTIN. [Concomitant]
     Active Substance: GABAPENTIN
     Indication: NYSTAGMUS
     Dosage: 300 MG, DAILY
     Route: 048
     Dates: start: 20120410
  3. HYDROCORTISONE BUTYRATE. [Concomitant]
     Active Substance: HYDROCORTISONE BUTYRATE
     Indication: RASH
     Dosage: 0.1 %, DAILY
     Route: 061
     Dates: start: 20130808
  4. MULTI VIT [Concomitant]
     Indication: ROUTINE HEALTH MAINTENANCE
     Dosage: UNK, QD
     Route: 048
     Dates: start: 20130808, end: 20140707
  5. COCONUT OIL [Concomitant]
     Active Substance: COCONUT OIL
     Indication: ROUTINE HEALTH MAINTENANCE
     Dosage: 1000 MG, DAILY
     Route: 048
     Dates: start: 20130805
  6. GILENYA [Suspect]
     Active Substance: FINGOLIMOD HYDROCHLORIDE
     Indication: MULTIPLE SCLEROSIS
     Dosage: 0.5 MG, QD
     Route: 048
     Dates: start: 20130809
  7. ALOE VERA [Concomitant]
     Active Substance: ALOE VERA LEAF
     Indication: ROUTINE HEALTH MAINTENANCE
     Dosage: 470 MG, DAILY
     Route: 048
     Dates: start: 20130808
  8. COENZYME Q10 [Concomitant]
     Active Substance: UBIDECARENONE
     Indication: ROUTINE HEALTH MAINTENANCE
     Dosage: 30 MG, DAILY
     Route: 048
     Dates: start: 20110822
  9. NYSTATIN. [Concomitant]
     Active Substance: NYSTATIN
     Indication: TINEA INFECTION
     Dosage: UNK
     Route: 061
     Dates: start: 20130930, end: 201403
  10. FISH OIL [Concomitant]
     Active Substance: FISH OIL
     Indication: ROUTINE HEALTH MAINTENANCE
     Dosage: 1000 MG, DAILY
     Route: 048
     Dates: start: 20130808
  11. BIOTIN [Concomitant]
     Active Substance: BIOTIN
     Indication: ROUTINE HEALTH MAINTENANCE
     Dosage: UNK
     Route: 065
     Dates: start: 20150713
  12. VITAMIN D [Concomitant]
     Active Substance: CHOLECALCIFEROL
     Indication: VITAMIN D DEFICIENCY
     Dosage: 2000 IU, DAILY
     Route: 048
     Dates: start: 20110422
  13. UBIQUINOL [Concomitant]
     Active Substance: UBIQUINOL
     Indication: ROUTINE HEALTH MAINTENANCE
     Dosage: 200 MG, UNK
     Route: 048
     Dates: start: 20130808, end: 20140224

REACTIONS (6)
  - Intracranial aneurysm [Recovered/Resolved]
  - Neuropathy peripheral [Unknown]
  - JC virus test positive [Not Recovered/Not Resolved]
  - Peroneal nerve palsy [Recovered/Resolved]
  - Muscular weakness [Recovered/Resolved]
  - Headache [Recovered/Resolved]

NARRATIVE: CASE EVENT DATE: 20131210
